FAERS Safety Report 25715218 (Version 1)
Quarter: 2025Q3

REPORT INFORMATION
  Report Type: Spontaneous
  Country: EU (occurrence: EU)
  Receive Date: 20250822
  Receipt Date: 20250822
  Transmission Date: 20251020
  Serious: Yes (Other)
  Sender: CELLTRION
  Company Number: EU-ABBVIE-6334861

PATIENT

DRUGS (4)
  1. ADALIMUMAB [Suspect]
     Active Substance: ADALIMUMAB
     Indication: Product used for unknown indication
     Route: 058
  2. ADALIMUMAB [Suspect]
     Active Substance: ADALIMUMAB
  3. UPADACITINIB [Suspect]
     Active Substance: UPADACITINIB
     Indication: Product used for unknown indication
     Route: 048
  4. COVID-19 VACCINE NOS [Suspect]
     Active Substance: COVID-19 VACCINE
     Indication: Immunisation
     Route: 042

REACTIONS (23)
  - Polyarthritis [Not Recovered/Not Resolved]
  - Polyarthritis [Unknown]
  - Whipple^s disease [Unknown]
  - Whipple^s disease [Unknown]
  - Anosmia [Unknown]
  - Arthralgia [Unknown]
  - Arthritis [Unknown]
  - Body temperature increased [Unknown]
  - General symptom [Unknown]
  - Hypogeusia [Unknown]
  - Inflammatory pain [Recovered/Resolved]
  - Inflammatory pain [Recovered/Resolved]
  - Sacroiliitis [Unknown]
  - Weight decreased [Unknown]
  - Back pain [Unknown]
  - Cough [Unknown]
  - Depression [Unknown]
  - Hepatitis A [Unknown]
  - Inflammation [Unknown]
  - Night sweats [Unknown]
  - Toxoplasmosis [Unknown]
  - Drug ineffective [Unknown]
  - Drug ineffective [Unknown]

NARRATIVE: CASE EVENT DATE: 20220801
